FAERS Safety Report 16770104 (Version 1)
Quarter: 2019Q3

REPORT INFORMATION
  Report Type: Report from Study
  Country: CO (occurrence: CO)
  Receive Date: 20190904
  Receipt Date: 20190904
  Transmission Date: 20191005
  Serious: Yes (Hospitalization)
  Sender: FDA-Public Use
  Company Number: CO-ASTELLAS-2019US035050

PATIENT
  Age: 26 Year
  Sex: Male
  Weight: 55 kg

DRUGS (4)
  1. PREDNISOLONE. [Concomitant]
     Active Substance: PREDNISOLONE
     Indication: PROPHYLAXIS AGAINST TRANSPLANT REJECTION
     Dosage: 5 MG, ONCE DAILY (EVERY 24 HOURS)
     Route: 048
     Dates: start: 20150926
  2. TACROLIMUS. [Suspect]
     Active Substance: TACROLIMUS
     Indication: PROPHYLAXIS AGAINST TRANSPLANT REJECTION
     Dosage: 5 MG, ONCE DAILY EVERY 24 HOURS
     Route: 048
     Dates: start: 20150926, end: 20190804
  3. TACROLIMUS. [Interacting]
     Active Substance: TACROLIMUS
     Dosage: 2 MG, ONCE DAILY (EVERY 24 HOURS)
     Route: 048
     Dates: start: 20190805
  4. AZATHIOPRINE. [Concomitant]
     Active Substance: AZATHIOPRINE
     Indication: PROPHYLAXIS AGAINST TRANSPLANT REJECTION
     Dosage: 75 MG, ONCE DAILY (EVERY 24 HOURS)
     Route: 048
     Dates: start: 20150926

REACTIONS (3)
  - Immunosuppressant drug level [Unknown]
  - Drug interaction [Recovered/Resolved]
  - Diarrhoea [Recovered/Resolved]

NARRATIVE: CASE EVENT DATE: 201907
